FAERS Safety Report 11713042 (Version 3)
Quarter: 2016Q1

REPORT INFORMATION
  Report Type: Report from Study
  Country: US (occurrence: US)
  Receive Date: 20151109
  Receipt Date: 20160212
  Transmission Date: 20160525
  Serious: Yes (Other)
  Sender: FDA-Public Use
  Company Number: US-AMGEN-USASP2015116384

PATIENT
  Age: 52 Year
  Sex: Female
  Weight: 71.67 kg

DRUGS (7)
  1. ADVIL (MEFENAMIC ACID) [Concomitant]
     Active Substance: MEFENAMIC ACID
     Indication: SWELLING
  2. ADVIL (MEFENAMIC ACID) [Concomitant]
     Active Substance: MEFENAMIC ACID
     Indication: PAIN
     Dosage: 400 MG, AS NECESSARY (PRN)
     Route: 048
  3. PREDNISONE. [Concomitant]
     Active Substance: PREDNISONE
     Indication: RHEUMATOID ARTHRITIS
     Dosage: 5-10 MG, DAILY
     Route: 048
  4. ENBREL [Suspect]
     Active Substance: ETANERCEPT
     Dosage: UNK
     Route: 065
     Dates: start: 201512
  5. ENBREL [Suspect]
     Active Substance: ETANERCEPT
     Indication: RHEUMATOID ARTHRITIS
     Dosage: 50 MG, QWK (WEEKLY)
     Route: 058
     Dates: start: 201403, end: 201511
  6. VITAMIN D3 [Concomitant]
     Active Substance: CHOLECALCIFEROL
     Indication: VITAMIN D DEFICIENCY
     Dosage: 8000 UNK, DAILY
     Route: 048
  7. VITAMIN E                          /00110501/ [Concomitant]
     Active Substance: TOCOPHEROL
     Indication: VITAMIN E DEFICIENCY
     Dosage: UNK, DAILY
     Route: 048

REACTIONS (8)
  - Condition aggravated [Recovering/Resolving]
  - Drug effect decreased [Unknown]
  - Arthritis [Recovering/Resolving]
  - Joint injury [Unknown]
  - Injection site pain [Unknown]
  - Rheumatoid arthritis [Unknown]
  - Headache [Unknown]
  - Mobility decreased [Unknown]

NARRATIVE: CASE EVENT DATE: 2015
